FAERS Safety Report 14391564 (Version 3)
Quarter: 2018Q1

REPORT INFORMATION
  Report Type: Spontaneous
  Country: DE (occurrence: DE)
  Receive Date: 20180116
  Receipt Date: 20180213
  Transmission Date: 20180509
  Serious: Yes (Other)
  Sender: FDA-Public Use
  Company Number: PHHY2018DE004662

PATIENT
  Sex: Female

DRUGS (1)
  1. NEVANAC [Suspect]
     Active Substance: NEPAFENAC
     Indication: POSTOPERATIVE CARE
     Dosage: UNK
     Route: 047
     Dates: start: 20170820

REACTIONS (1)
  - Macular oedema [Recovering/Resolving]

NARRATIVE: CASE EVENT DATE: 201709
